FAERS Safety Report 21638994 (Version 1)
Quarter: 2022Q4

REPORT INFORMATION
  Report Type: Spontaneous
  Country: US (occurrence: US)
  Receive Date: 20221124
  Receipt Date: 20221124
  Transmission Date: 20230113
  Serious: No
  Sender: FDA-Public Use
  Company Number: US-SA-SAC20221121000976

PATIENT
  Age: 37 Year
  Sex: Female

DRUGS (1)
  1. DUPIXENT [Suspect]
     Active Substance: DUPILUMAB
     Dosage: 300 MG, OTHER
     Route: 058

REACTIONS (6)
  - Lacrimation increased [Unknown]
  - Eyelid margin crusting [Unknown]
  - Skin fissures [Unknown]
  - Condition aggravated [Unknown]
  - Swelling of eyelid [Unknown]
  - Vision blurred [Unknown]

NARRATIVE: CASE EVENT DATE: 20221101
